FAERS Safety Report 18978993 (Version 1)
Quarter: 2021Q1

REPORT INFORMATION
  Report Type: Spontaneous
  Country: US (occurrence: US)
  Receive Date: 20210308
  Receipt Date: 20210308
  Transmission Date: 20210420
  Serious: Yes (Other)
  Sender: FDA-Public Use
  Company Number: US-SA-2021SA075016

PATIENT
  Age: 59 Year
  Sex: Male

DRUGS (1)
  1. ZANTAC [Suspect]
     Active Substance: RANITIDINE HYDROCHLORIDE
     Indication: GASTROOESOPHAGEAL REFLUX DISEASE
     Dosage: 150 MG
     Dates: start: 201102, end: 201710

REACTIONS (3)
  - Gastric cancer stage III [Recovering/Resolving]
  - Prostate cancer stage III [Recovering/Resolving]
  - Colorectal cancer stage IV [Recovering/Resolving]

NARRATIVE: CASE EVENT DATE: 20111201
